FAERS Safety Report 5500253-2 (Version None)
Quarter: 2007Q4

REPORT INFORMATION
  Report Type: 
  Country: None (occurrence: None)
  Receive Date: 20071025
  Receipt Date: 20071010
  Transmission Date: 20080405
  Serious: Yes (Hospitalization)
  Sender: FDA-Public Use
  Company Number: S07-FRA-05565-01

PATIENT
  Age: 67 Year
  Sex: Female

DRUGS (4)
  1. ESCITALOPRAM OXALATE [Suspect]
     Indication: DEPRESSION
     Dosage: 10 MG QD PO
     Route: 048
     Dates: end: 20070424
  2. PRAZEPAM [Suspect]
     Dates: end: 20070424
  3. PRAZEPAM [Suspect]
     Dosage: 0.5 TID PO
     Route: 048
  4. ACETAMINOPHEN W/ PROPOXYPHENE HCL [Concomitant]

REACTIONS (5)
  - BALANCE DISORDER [None]
  - DIPLOPIA [None]
  - DRUG TOXICITY [None]
  - GENERAL PHYSICAL HEALTH DETERIORATION [None]
  - WEIGHT DECREASED [None]
